FAERS Safety Report 6463210-8 (Version None)
Quarter: 2009Q4

REPORT INFORMATION
  Report Type: 
  Country: None (occurrence: None)
  Receive Date: 20091123
  Receipt Date: 20091117
  Transmission Date: 20100525
  Serious: Yes (Other)
  Sender: FDA-Public Use
  Company Number: 2009SP035463

PATIENT
  Age: 80 Year
  Sex: Female
  Weight: 57 kg

DRUGS (5)
  1. DEXAMETHASONE SODIUM PHOSPHATE [Suspect]
     Indication: OTITIS MEDIA
     Dosage: BID; IAUR
     Route: 014
     Dates: start: 20090925, end: 20090926
  2. MEIACT [Concomitant]
  3. OFLOXACIN [Concomitant]
  4. MUCODYNE [Concomitant]
  5. METHYCOBAL [Concomitant]

REACTIONS (3)
  - FACIAL PALSY [None]
  - HEMIPLEGIA [None]
  - PAIN [None]
